FAERS Safety Report 5350752-1 (Version None)
Quarter: 2007Q2

REPORT INFORMATION
  Report Type: 
  Country: None (occurrence: None)
  Receive Date: 20070608
  Receipt Date: 20050919
  Transmission Date: 20071010
  Serious: Yes (Life-Threatening, Hospitalization)
  Sender: FDA-Public Use
  Company Number: US-ROCHE-421233

PATIENT
  Age: 53 Year
  Sex: Male

DRUGS (11)
  1. PEG-INTERFERON ALFA 2A (RO 25-8310) [Suspect]
     Route: 058
     Dates: start: 20050511
  2. RIBAVIRIN [Suspect]
     Route: 048
     Dates: start: 20050511
  3. ZOLOFT [Concomitant]
     Indication: DEPRESSION
  4. ATENOLOL [Concomitant]
     Indication: HYPERTENSION
  5. HYDROCHLOROTHIAZIDE [Concomitant]
     Indication: HYPERTENSION
     Dates: start: 20010601
  6. VIAGRA [Concomitant]
     Indication: ERECTILE DYSFUNCTION
     Dates: start: 20020801
  7. SUDAFED 12 HOUR [Concomitant]
     Indication: POSTNASAL DRIP
     Dates: start: 20050601
  8. AMBIEN [Concomitant]
     Indication: INSOMNIA
     Dates: start: 20050601
  9. PRILOSEC [Concomitant]
     Indication: STOMACH DISCOMFORT
     Dates: start: 20050801, end: 20050815
  10. PROCRIT [Concomitant]
     Dates: start: 20050815
  11. REGLAN [Concomitant]
     Dates: start: 20050801, end: 20050825

REACTIONS (1)
  - APPENDICITIS [None]
